FAERS Safety Report 5314056-5 (Version None)
Quarter: 2007Q2

REPORT INFORMATION
  Report Type: 
  Country: None (occurrence: None)
  Receive Date: 20070501
  Receipt Date: 20070419
  Transmission Date: 20071010
  Serious: Yes (Life-Threatening, Hospitalization, Other)
  Sender: FDA-Public Use
  Company Number: CN-PFIZER INC-2007031715

PATIENT

DRUGS (1)
  1. SOLU-MEDROL [Suspect]
     Indication: INTERNAL FIXATION OF FRACTURE
     Route: 042
     Dates: start: 20070401, end: 20070401

REACTIONS (1)
  - MYASTHENIA GRAVIS [None]
